FAERS Safety Report 15140741 (Version 1)
Quarter: 2018Q3

REPORT INFORMATION
  Report Type: Spontaneous
  Country: US (occurrence: US)
  Receive Date: 20180713
  Receipt Date: 20180713
  Transmission Date: 20181010
  Serious: No
  Sender: FDA-Public Use
  Company Number: US-009507513-1807USA001186

PATIENT
  Age: 30 Year
  Sex: Female
  Weight: 49.89 kg

DRUGS (1)
  1. NEXPLANON [Suspect]
     Active Substance: ETONOGESTREL
     Indication: CONTRACEPTION
     Dosage: 1 IMPLANT (3 YEAR IMPLANT)
     Route: 059
     Dates: start: 20180205

REACTIONS (4)
  - Discharge [Unknown]
  - Nausea [Unknown]
  - Amenorrhoea [Unknown]
  - Adnexa uteri pain [Unknown]

NARRATIVE: CASE EVENT DATE: 20180205
